FAERS Safety Report 14837932 (Version 1)
Quarter: 2018Q2

REPORT INFORMATION
  Report Type: Spontaneous
  Country: FR (occurrence: FR)
  Receive Date: 20180502
  Receipt Date: 20180502
  Transmission Date: 20180711
  Serious: Yes (Hospitalization)
  Sender: FDA-Public Use
  Company Number: FR-PFIZER INC-2018168878

PATIENT
  Age: 15 Year
  Sex: Female

DRUGS (4)
  1. RISPERDAL [Suspect]
     Active Substance: RISPERIDONE
     Indication: SUICIDE ATTEMPT
     Dosage: 2 MG, UNK
     Route: 048
     Dates: start: 20180308, end: 20180308
  2. ZOLOFT [Suspect]
     Active Substance: SERTRALINE HYDROCHLORIDE
     Indication: SUICIDE ATTEMPT
     Dosage: 50 MG, UNK
     Route: 048
     Dates: start: 20180308, end: 20180308
  3. LAMICTAL [Suspect]
     Active Substance: LAMOTRIGINE
     Indication: SUICIDE ATTEMPT
     Dosage: 200 MG, UNK
     Route: 048
     Dates: start: 20180308, end: 20180308
  4. CATAPRESSAN /00171102/ [Suspect]
     Active Substance: CLONIDINE HYDROCHLORIDE
     Indication: SUICIDE ATTEMPT
     Dosage: 0.15 MG, UNK
     Route: 048
     Dates: start: 20180308, end: 20180308

REACTIONS (1)
  - Hypotension [Recovered/Resolved]

NARRATIVE: CASE EVENT DATE: 20180309
